FAERS Safety Report 6220047-2 (Version None)
Quarter: 2009Q2

REPORT INFORMATION
  Report Type: 
  Country: None (occurrence: None)
  Receive Date: 20090609
  Receipt Date: 20090529
  Transmission Date: 20091009
  Serious: Yes (Other)
  Sender: FDA-Public Use
  Company Number: PHHY2009FR21946

PATIENT
  Age: 46 Year
  Sex: Female

DRUGS (2)
  1. STALEVO 100 [Suspect]
     Indication: PARKINSON'S DISEASE
     Dosage: 200/50/12.5 MG EVERY 2 HOURS
     Dates: start: 20030615
  2. SIFROL [Suspect]
     Indication: PARKINSON'S DISEASE
     Dosage: 0.18 MG, 8 TIMES DAILY
     Dates: start: 20030615

REACTIONS (3)
  - COMPULSIVE SHOPPING [None]
  - PATHOLOGICAL GAMBLING [None]
  - PERSONALITY CHANGE [None]
